FAERS Safety Report 8012279-8 (Version None)
Quarter: 2011Q4

REPORT INFORMATION
  Report Type: 
  Country: None (occurrence: None)
  Receive Date: 20111228
  Receipt Date: 20111223
  Transmission Date: 20120403
  Serious: No
  Sender: FDA-Public Use
  Company Number: US-BAYER-2011-123794

PATIENT
  Age: 70 Year
  Sex: Female
  Weight: 73 kg

DRUGS (6)
  1. ARIMIDEX [Concomitant]
  2. NAPROXEN (ALEVE) [Suspect]
     Indication: ARTHRITIS
     Dosage: UNK
     Route: 048
     Dates: start: 20110101
  3. VIACTIV [CALCIUM] [Concomitant]
  4. FISH OIL [Concomitant]
  5. MULTI-VITAMIN [Concomitant]
  6. HYDROCHLOROTHIAZIDE [Concomitant]

REACTIONS (1)
  - UNDERDOSE [None]
